FAERS Safety Report 12364767 (Version 1)
Quarter: 2016Q2

REPORT INFORMATION
  Report Type: Spontaneous
  Country: US (occurrence: US)
  Receive Date: 20160513
  Receipt Date: 20160513
  Transmission Date: 20160815
  Serious: No
  Sender: FDA-Public Use
  Company Number: US-MDT-ADR-2016-00865

PATIENT
  Age: 59 Year
  Sex: Male

DRUGS (4)
  1. BUPIVACAINE. [Suspect]
     Active Substance: BUPIVACAINE
     Dosage: 6.885 MG/DAY
     Route: 037
     Dates: start: 20160502
  2. BACLOFEN. [Suspect]
     Active Substance: BACLOFEN
     Dosage: 140 MCG/ML
     Route: 037
     Dates: start: 20160502
  3. CLONIDINE. [Suspect]
     Active Substance: CLONIDINE
     Dosage: 53.72 MCG/DAY
     Route: 037
     Dates: start: 20160502
  4. DILAUDID [Suspect]
     Active Substance: HYDROMORPHONE HYDROCHLORIDE
     Dosage: 4.590 MG/ML
     Route: 037
     Dates: start: 20160502

REACTIONS (4)
  - Condition aggravated [Unknown]
  - Malaise [Unknown]
  - Urinary incontinence [Unknown]
  - Vomiting [Unknown]

NARRATIVE: CASE EVENT DATE: 20160502
